FAERS Safety Report 14608103 (Version 1)
Quarter: 2018Q1

REPORT INFORMATION
  Report Type: Spontaneous
  Country: None (occurrence: PT)
  Receive Date: 20180307
  Receipt Date: 20180307
  Transmission Date: 20180509
  Serious: Yes (Other)
  Sender: FDA-Public Use
  Company Number: PT-AUROBINDO-AUR-APL-2018-012116

PATIENT
  Age: 91 Year
  Sex: Female
  Weight: 66 kg

DRUGS (7)
  1. LEVOFLOXACIN. [Suspect]
     Active Substance: LEVOFLOXACIN
     Indication: URINARY TRACT INFECTION
     Dosage: 500 MILLIGRAM
     Route: 048
     Dates: start: 20171226, end: 20171227
  2. METFORMIN [Concomitant]
     Active Substance: METFORMIN HYDROCHLORIDE
     Indication: TYPE 2 DIABETES MELLITUS
     Dosage: 850 MILLIGRAM 1 DAY
     Route: 048
  3. BETASERC                           /00141801/ [Concomitant]
     Active Substance: BETAHISTINE
     Indication: VERTIGO
     Dosage: 24 MILLIGRAM 1 DAY
     Route: 048
  4. SAVAL                              /01319601/ [Concomitant]
     Indication: HYPERTENSION
     Dosage: 1 DOSAGE FORM
     Route: 048
  5. INDERAL [Concomitant]
     Active Substance: PROPRANOLOL HYDROCHLORIDE
     Indication: HYPERTENSION
     Dosage: 40 MILLIGRAM
     Route: 048
  6. PAROXETINE. [Concomitant]
     Active Substance: PAROXETINE
     Indication: PRODUCT USED FOR UNKNOWN INDICATION
     Dosage: 20 MILLIGRAM
     Route: 048
  7. MIRTAZAPINE. [Concomitant]
     Active Substance: MIRTAZAPINE
     Indication: PRODUCT USED FOR UNKNOWN INDICATION
     Dosage: 15 MILLIGRAM 1 DAY
     Route: 048

REACTIONS (4)
  - Hypotension [Recovered/Resolved]
  - Pruritus generalised [Recovered/Resolved]
  - Generalised erythema [Recovered/Resolved]
  - Vomiting [Recovered/Resolved]

NARRATIVE: CASE EVENT DATE: 20171228
